FAERS Safety Report 22274366 (Version 1)
Quarter: 2023Q2

REPORT INFORMATION
  Report Type: Spontaneous
  Country: US (occurrence: None)
  Receive Date: 20230501
  Receipt Date: 20230501
  Transmission Date: 20230722
  Serious: No
  Sender: FDA-Public Use
  Company Number: None

PATIENT
  Sex: Female

DRUGS (1)
  1. ICATIBANT ACETATE [Suspect]
     Active Substance: ICATIBANT ACETATE
     Indication: Complement deficiency disease
     Dosage: OTHER FREQUENCY : AS NEEDED;?
     Route: 058
     Dates: start: 20171018

REACTIONS (2)
  - Injection site bruising [None]
  - Gastrointestinal disorder [None]
